FAERS Safety Report 25852573 (Version 1)
Quarter: 2025Q3

REPORT INFORMATION
  Report Type: Spontaneous
  Country: US (occurrence: None)
  Receive Date: 20250926
  Receipt Date: 20250926
  Transmission Date: 20251020
  Serious: Yes (Hospitalization)
  Sender: FDA-CTU
  Company Number: None

PATIENT
  Age: 64 Year
  Sex: Female
  Weight: 46 kg

DRUGS (2)
  1. PEMBROLIZUMAB [Suspect]
     Active Substance: PEMBROLIZUMAB
     Dates: end: 20250806
  2. ALIMTA [Suspect]
     Active Substance: PEMETREXED DISODIUM
     Dates: end: 20250827

REACTIONS (7)
  - Treatment delayed [None]
  - Cough [None]
  - Oropharyngeal pain [None]
  - Dyspnoea [None]
  - Haemoglobin decreased [None]
  - Wheezing [None]
  - Lower respiratory tract infection bacterial [None]

NARRATIVE: CASE EVENT DATE: 20250908
